FAERS Safety Report 19236299 (Version 1)
Quarter: 2021Q2

REPORT INFORMATION
  Report Type: Spontaneous
  Country: US (occurrence: US)
  Receive Date: 20210510
  Receipt Date: 20210510
  Transmission Date: 20210717
  Serious: Yes (Other)
  Sender: FDA-Public Use
  Company Number: US-CIPLA LTD.-2021US03337

PATIENT

DRUGS (10)
  1. CYTOMEL [Concomitant]
     Active Substance: LIOTHYRONINE SODIUM
     Indication: HYPOTHYROIDISM
     Dosage: 2.5 MCG, DAILY
     Route: 065
  2. NALTREXONE [Concomitant]
     Active Substance: NALTREXONE
     Indication: ALCOHOLISM
     Dosage: 50 MG, DAILY
     Route: 065
  3. GABAPENTIN. [Suspect]
     Active Substance: GABAPENTIN
     Indication: ANXIETY
     Dosage: 100 MILLIGRAM, TID
     Route: 065
     Dates: start: 20210328, end: 20210423
  4. DISULFIRAM. [Concomitant]
     Active Substance: DISULFIRAM
     Indication: ALCOHOLISM
     Dosage: 250 MG, DAILY
     Route: 065
  5. GABAPENTIN. [Suspect]
     Active Substance: GABAPENTIN
     Indication: NEUROPATHY PERIPHERAL
     Dosage: UNK
     Route: 065
  6. GABAPENTIN. [Suspect]
     Active Substance: GABAPENTIN
     Dosage: 200 MILLIGRAM, TID
     Route: 065
     Dates: start: 20210423, end: 20210428
  7. LEVOTHYROXINE. [Concomitant]
     Active Substance: LEVOTHYROXINE
     Indication: HYPOTHYROIDISM
     Dosage: 88 MCG DAILY
     Route: 065
  8. TRAZODONE [Concomitant]
     Active Substance: TRAZODONE HYDROCHLORIDE
     Indication: SLEEP APNOEA SYNDROME
     Dosage: 100 MG DAILY
     Route: 065
  9. EFFEXOR [Concomitant]
     Active Substance: VENLAFAXINE HYDROCHLORIDE
     Indication: DEPRESSION
     Dosage: 112.5 MG, DAILY
     Route: 065
     Dates: start: 201704
  10. PANTOPRAZOLE [Concomitant]
     Active Substance: PANTOPRAZOLE
     Indication: GASTRITIS
     Dosage: 40 MG, DAILY
     Route: 065

REACTIONS (12)
  - Constipation [Recovering/Resolving]
  - Postmenopausal haemorrhage [Recovered/Resolved]
  - Dizziness [Recovering/Resolving]
  - Muscular weakness [Recovering/Resolving]
  - Muscle tightness [Recovering/Resolving]
  - Fatigue [Recovering/Resolving]
  - Myalgia [Recovering/Resolving]
  - Off label use [Unknown]
  - Irritability [Recovering/Resolving]
  - Agitation [Recovering/Resolving]
  - Product use in unapproved indication [Unknown]
  - Vaginal haemorrhage [Recovered/Resolved]

NARRATIVE: CASE EVENT DATE: 20210328
